FAERS Safety Report 10588342 (Version 1)
Quarter: 2014Q4

REPORT INFORMATION
  Report Type: Spontaneous
  Country: IT (occurrence: IT)
  Receive Date: 20141117
  Receipt Date: 20141117
  Transmission Date: 20150529
  Serious: Yes (Death, Hospitalization)
  Sender: FDA-Public Use
  Company Number: IT-PFIZER INC-2014312900

PATIENT
  Age: 42 Year
  Sex: Female

DRUGS (1)
  1. MISOPROSTOL. [Suspect]
     Active Substance: MISOPROSTOL
     Indication: ABORTION INDUCED
     Dosage: 12 TABLETS, (200 MICRO G EACH)
     Route: 048

REACTIONS (2)
  - Intentional product misuse [Fatal]
  - Toxic shock syndrome [Fatal]
